FAERS Safety Report 7117951-X (Version None)
Quarter: 2010Q4

REPORT INFORMATION
  Report Type: 
  Country: None (occurrence: None)
  Receive Date: 20101123
  Receipt Date: 20101117
  Transmission Date: 20110411
  Serious: Yes (Death, Hospitalization, Other)
  Sender: FDA-Public Use
  Company Number: PHFR2010GB02287

PATIENT
  Sex: Male

DRUGS (2)
  1. CLOZARIL [Suspect]
     Indication: SCHIZOPHRENIA
     Dosage: UNK
     Route: 048
     Dates: start: 19920610
  2. ORAMORPH SR [Concomitant]
     Dosage: UNK

REACTIONS (6)
  - ASTHENIA [None]
  - DYSPHAGIA [None]
  - LUNG NEOPLASM MALIGNANT [None]
  - MENTAL IMPAIRMENT [None]
  - METASTASES TO CENTRAL NERVOUS SYSTEM [None]
  - POVERTY OF SPEECH [None]
